FAERS Safety Report 21707236 (Version 2)
Quarter: 2024Q1

REPORT INFORMATION
  Report Type: Spontaneous
  Country: US (occurrence: US)
  Receive Date: 20221209
  Receipt Date: 20240315
  Transmission Date: 20240409
  Serious: No
  Sender: FDA-Public Use
  Company Number: US-INCYTE CORPORATION-2022IN011756

PATIENT

DRUGS (2)
  1. JAKAFI [Suspect]
     Active Substance: RUXOLITINIB
     Indication: Myelodysplastic syndrome
     Dosage: 15 MILLIGRAM, BID
     Route: 048
     Dates: start: 202210
  2. JAKAFI [Suspect]
     Active Substance: RUXOLITINIB
     Dosage: 20 MILLIGRAM, BID
     Route: 048
     Dates: start: 20230519

REACTIONS (5)
  - Swelling [Unknown]
  - Decreased activity [Unknown]
  - Off label use [Unknown]
  - Oedema [Unknown]
  - Discomfort [Unknown]

NARRATIVE: CASE EVENT DATE: 20221001
